FAERS Safety Report 10314749 (Version 2)
Quarter: 2014Q3

REPORT INFORMATION
  Report Type: Spontaneous
  Country: US (occurrence: None)
  Receive Date: 20140717
  Receipt Date: 20140722
  Transmission Date: 20150326
  Serious: Yes (Hospitalization, Other)
  Sender: FDA-Public Use
  Company Number: AUR-APL-2014-07376

PATIENT
  Age: 80 Year
  Sex: Female
  Weight: 52.2 kg

DRUGS (2)
  1. DULOXETINE [Suspect]
     Active Substance: DULOXETINE
     Indication: PRODUCT USED FOR UNKNOWN INDICATION
     Dosage: UNKNOWN
  2. LYRICA [Suspect]
     Active Substance: PREGABALIN
     Indication: DIABETIC NEUROPATHY
     Route: 048

REACTIONS (5)
  - Hip fracture [None]
  - Gait disturbance [None]
  - Fall [None]
  - Pain in extremity [None]
  - Disease recurrence [None]

NARRATIVE: CASE EVENT DATE: 201405
